FAERS Safety Report 6483103-X (Version None)
Quarter: 2009Q4

REPORT INFORMATION
  Report Type: 
  Country: None (occurrence: None)
  Receive Date: 20091208
  Receipt Date: 20091208
  Transmission Date: 20100525
  Serious: Yes (Hospitalization)
  Sender: FDA-Public Use
  Company Number: None

PATIENT
  Age: 61 Year
  Sex: Male
  Weight: 82.8 kg

DRUGS (2)
  1. CETUXIMAB [Suspect]
     Indication: HEAD AND NECK CANCER
     Dosage: 490 MG WEEKLY IV
     Route: 042
     Dates: start: 20091207
  2. CISPLATIN [Suspect]
     Indication: HEAD AND NECK CANCER
     Dosage: 196 MG Q 21 DAYS IV
     Route: 042
     Dates: start: 20091130

REACTIONS (1)
  - BLOOD CREATININE INCREASED [None]
